FAERS Safety Report 15518326 (Version 1)
Quarter: 2018Q4

REPORT INFORMATION
  Report Type: Spontaneous
  Country: FR (occurrence: FR)
  Receive Date: 20181017
  Receipt Date: 20181017
  Transmission Date: 20190205
  Serious: Yes (Hospitalization)
  Sender: FDA-Public Use
  Company Number: FR-TEVA-2018-FR-964881

PATIENT
  Age: 66 Year
  Sex: Female
  Weight: 63 kg

DRUGS (5)
  1. SIMVASTATIN 20MG [Concomitant]
     Active Substance: SIMVASTATIN
     Dosage: 0 - 0 - 1
  2. CARBOPLATINE ACCORD [Suspect]
     Active Substance: CARBOPLATIN
     Indication: NEUROENDOCRINE CARCINOMA
     Route: 042
     Dates: start: 20180626, end: 20180626
  3. ETOPOSIDE TEVA [Suspect]
     Active Substance: ETOPOSIDE
     Indication: NEUROENDOCRINE CARCINOMA
     Dosage: 166 MILLIGRAM DAILY;
     Route: 042
     Dates: start: 20180626, end: 20180628
  4. PERINDOPRIL 4MG [Concomitant]
     Active Substance: PERINDOPRIL
     Dosage: 1/2 - 0 - 0
  5. LANSOPRAZOLE 15MG [Concomitant]
     Active Substance: LANSOPRAZOLE
     Dosage: 0 - 0 - 2

REACTIONS (1)
  - Pancytopenia [Recovered/Resolved]

NARRATIVE: CASE EVENT DATE: 20180709
